FAERS Safety Report 5859656-9 (Version None)
Quarter: 2008Q3

REPORT INFORMATION
  Report Type: 
  Country: None (occurrence: None)
  Receive Date: 20080827
  Receipt Date: 20080825
  Transmission Date: 20090109
  Serious: Yes (Other)
  Sender: FDA-Public Use
  Company Number: US-JNJFOC-20080306829

PATIENT
  Sex: Male
  Weight: 5.22 kg

DRUGS (2)
  1. INFANTS MYLICON [Suspect]
     Dosage: LESS THAN 0.3 ML TWICE A DAY
     Route: 048
  2. INFANTS MYLICON [Suspect]
     Indication: DRUG USE FOR UNKNOWN INDICATION
     Dosage: LESS THAN 0.3 ML EVERY 3 TO 4 HOURS
     Route: 048

REACTIONS (1)
  - BLOOD URINE PRESENT [None]
